FAERS Safety Report 10143758 (Version 1)
Quarter: 2014Q2

REPORT INFORMATION
  Report Type: Report from Study
  Country: US (occurrence: US)
  Receive Date: 20140430
  Receipt Date: 20140430
  Transmission Date: 20141212
  Serious: Yes (Hospitalization)
  Sender: FDA-Public Use
  Company Number: US-009507513-1404USA013848

PATIENT
  Age: 49 Year
  Sex: Male
  Weight: 78.7 kg

DRUGS (6)
  1. VORINOSTAT [Suspect]
     Indication: ACUTE MYELOID LEUKAEMIA
     Dosage: ON DAYS 1-3 CYCLE 4
     Route: 048
     Dates: start: 20140405, end: 20140407
  2. VORINOSTAT [Suspect]
     Dosage: 1ON DAYS 1-3   CYCLE 4
     Route: 048
     Dates: start: 20131106, end: 20131108
  3. IDARUBICIN [Suspect]
     Indication: ACUTE MYELOID LEUKAEMIA
     Dosage: 08 MG/M2, QD OVER 15MIN ON DAYS 4-5
     Route: 042
     Dates: start: 20140407, end: 20140408
  4. IDARUBICIN [Suspect]
     Dosage: 12 MG/M2, QD OVER 15MIN ON DAYS 4-6
     Route: 042
     Dates: start: 20131109, end: 20131111
  5. CYTARABINE [Suspect]
     Indication: ACUTE MYELOID LEUKAEMIA
     Dosage: 750 MG/M2, QD CONTINUOUS INFUSION ON DAYS 4-6
     Route: 042
     Dates: start: 20140407, end: 20140411
  6. CYTARABINE [Suspect]
     Dosage: 1500MG/M2, QD CONTINUES INFUSION ON DAYS 4-7
     Route: 042
     Dates: start: 20131109, end: 20131112

REACTIONS (1)
  - Febrile neutropenia [Recovered/Resolved]
